FAERS Safety Report 8609310-5 (Version None)
Quarter: 2012Q3

REPORT INFORMATION
  Report Type: 
  Country: None (occurrence: None)
  Receive Date: 20120821
  Receipt Date: 20120815
  Transmission Date: 20120928
  Serious: Yes (Hospitalization)
  Sender: FDA-Public Use
  Company Number: PHEH2012US015962

PATIENT
  Sex: Female

DRUGS (7)
  1. MAGNESIUM [Concomitant]
     Indication: SUPPLEMENTATION THERAPY
     Dosage: UNK UKN, QD
     Route: 048
  2. VITAMIN E [Concomitant]
     Indication: SUPPLEMENTATION THERAPY
     Dosage: UNK UKN, QD
     Route: 048
  3. NORTRIPTYLINE [Concomitant]
     Indication: MIGRAINE
     Dosage: 50 MG, QD
     Route: 048
  4. CRESTOR [Concomitant]
     Indication: BLOOD CHOLESTEROL
     Dosage: 10 MG, TID
     Route: 048
  5. TEKTURNA [Suspect]
     Indication: HYPERTENSION
     Dosage: 300 MG, QD
     Route: 048
  6. POTASSIUM [Concomitant]
     Indication: SUPPLEMENTATION THERAPY
     Dosage: UNK UKN, QD
     Route: 048
  7. VITAMIN B-12 [Concomitant]
     Indication: SUPPLEMENTATION THERAPY
     Dosage: UNK UKN, QD
     Route: 048

REACTIONS (4)
  - GASTRITIS [None]
  - BARTTER'S SYNDROME [None]
  - RENIN INCREASED [None]
  - VOMITING [None]
